FAERS Safety Report 13416969 (Version 1)
Quarter: 2017Q2

REPORT INFORMATION
  Report Type: Report from Study
  Country: None (occurrence: BR)
  Receive Date: 20170406
  Receipt Date: 20170406
  Transmission Date: 20170830
  Serious: Yes (Other)
  Sender: FDA-Public Use
  Company Number: BR-ABBVIE-17P-020-1935173-00

PATIENT
  Sex: Female
  Weight: 67 kg

DRUGS (6)
  1. COLPOTROFINE [Concomitant]
     Indication: MENOPAUSE
     Route: 067
  2. OMEPRAZOLE. [Concomitant]
     Active Substance: OMEPRAZOLE
     Indication: PROPHYLAXIS
     Dosage: 1IN MORNING / 30 MIN AFTER SYNTHROID
  3. CRESTOR [Concomitant]
     Active Substance: ROSUVASTATIN CALCIUM
     Indication: PROPHYLAXIS
     Dosage: DAILY DOSE: 1 TAB IN THE NIGHT
     Dates: start: 2004
  4. ROCALTROL [Concomitant]
     Active Substance: CALCITRIOL
     Indication: BONE DISORDER
     Dates: start: 2004
  5. DEPURA [Concomitant]
     Active Substance: CHOLECALCIFEROL
     Indication: VITAMIN D
     Dates: start: 2004
  6. SYNTHROID [Suspect]
     Active Substance: LEVOTHYROXINE SODIUM
     Indication: THYROIDECTOMY
     Dosage: DAILY DOSE: 122 MCG MORNING, FASTING
     Route: 048
     Dates: start: 2004

REACTIONS (10)
  - Cataract [Unknown]
  - Dizziness [Recovering/Resolving]
  - Drug administration error [Unknown]
  - Blood pressure decreased [Not Recovered/Not Resolved]
  - Glaucoma [Unknown]
  - Dysstasia [Recovering/Resolving]
  - Nephrolithiasis [Not Recovered/Not Resolved]
  - Bone disorder [Not Recovered/Not Resolved]
  - Varicose vein [Unknown]
  - Labyrinthitis [Recovering/Resolving]
